FAERS Safety Report 16494702 (Version 7)
Quarter: 2020Q1

REPORT INFORMATION
  Report Type: Report from Study
  Country: DE (occurrence: DE)
  Receive Date: 20190628
  Receipt Date: 20200129
  Transmission Date: 20200409
  Serious: Yes (Death, Hospitalization)
  Sender: FDA-Public Use
  Company Number: DE-EISAI MEDICAL RESEARCH-EC-2019-055892

PATIENT
  Age: 64 Year
  Sex: Male
  Weight: 60 kg

DRUGS (26)
  1. OXYCODONE [Concomitant]
     Active Substance: OXYCODONE
  2. PANTOPRAZOL [Concomitant]
     Active Substance: PANTOPRAZOLE SODIUM
  3. ZOMETA [Concomitant]
     Active Substance: ZOLEDRONIC ACID
  4. LENVATINIB [Suspect]
     Active Substance: LENVATINIB
     Route: 048
     Dates: start: 20190723, end: 20191003
  5. LOPERAMIDE [Concomitant]
     Active Substance: LOPERAMIDE
  6. MAGNESIUM VERLA [Concomitant]
     Active Substance: MAGNESIUM
  7. LENVATINIB [Suspect]
     Active Substance: LENVATINIB
     Route: 048
     Dates: start: 20190526, end: 20190619
  8. AMITRIPTYLIN [Concomitant]
     Active Substance: AMITRIPTYLINE
  9. PARACETAMOL [Concomitant]
     Active Substance: ACETAMINOPHEN
  10. LENVATINIB [Suspect]
     Active Substance: LENVATINIB
     Route: 048
     Dates: start: 20190722, end: 20190722
  11. L-THYROX [Concomitant]
     Active Substance: LEVOTHYROXINE SODIUM
  12. FRESUBIN [Concomitant]
     Active Substance: AMINO ACIDS\DEXTROSE\ELECTROLYTES NOS\SOYBEAN OIL\VITAMINS
  13. AZITHROMYCIN ANHYDROUS. [Concomitant]
     Active Substance: AZITHROMYCIN ANHYDROUS
  14. ROXI ARISTO [Concomitant]
  15. CALCITRIOL. [Concomitant]
     Active Substance: CALCITRIOL
  16. ALLOPURINOL. [Concomitant]
     Active Substance: ALLOPURINOL
  17. SALBUBRONCH ELEXIER [Concomitant]
  18. ACC [Concomitant]
     Active Substance: ACETYLCYSTEINE
  19. SPIRONOLACTON [Concomitant]
     Active Substance: SPIRONOLACTONE
  20. CALCIUM [Concomitant]
     Active Substance: CALCIUM
  21. DEKRISTOL [Concomitant]
     Active Substance: CHOLECALCIFEROL
  22. PREGABALIN. [Concomitant]
     Active Substance: PREGABALIN
  23. BISOPROLOL [Concomitant]
     Active Substance: BISOPROLOL
  24. FUROSEMID [Concomitant]
     Active Substance: FUROSEMIDE
  25. LENVATINIB [Suspect]
     Active Substance: LENVATINIB
     Indication: THYROID CANCER
     Route: 048
     Dates: start: 20181018, end: 20190429
  26. SULTAMICILLIN [Concomitant]
     Active Substance: SULTAMICILLIN

REACTIONS (3)
  - Haematuria [Recovered/Resolved]
  - Pleural effusion [Recovered/Resolved]
  - Pneumonia [Fatal]

NARRATIVE: CASE EVENT DATE: 20190430
